FAERS Safety Report 6879870-3 (Version None)
Quarter: 2010Q3

REPORT INFORMATION
  Report Type: 
  Country: None (occurrence: None)
  Receive Date: 20100728
  Receipt Date: 20100720
  Transmission Date: 20110219
  Serious: Yes (Hospitalization)
  Sender: FDA-Public Use
  Company Number: US-B.I. PHARMACEUTICALS,INC./RIDGEFIELD-2010-BP-08301BP

PATIENT
  Age: 71 Year
  Sex: Male
  Weight: 88.2 kg

DRUGS (15)
  1. AGGRENOX [Suspect]
     Route: 048
     Dates: start: 20030801, end: 20100609
  2. SUTENT [Suspect]
     Indication: BLADDER CANCER
     Dosage: 37.5 MG
     Route: 048
     Dates: start: 20100318, end: 20100609
  3. LOPERAMIDE (LOPERAMIDE) [Concomitant]
     Dates: start: 20100428
  4. HYDRALAZINE HCL [Concomitant]
     Dates: start: 20100329
  5. LISINOPRIL HYDROCHLOROTHIAZIDE (HYDROCHLOROTHIAZIDE) (LISINOPRIL) [Concomitant]
     Dates: start: 20100324
  6. DOCUSATE SOCIUM (COLACE) [Concomitant]
     Dates: start: 20100224
  7. FERROUS SULFATE TAB [Concomitant]
     Dates: start: 20100613
  8. ALLOPURINOL [Concomitant]
     Dates: start: 20091002
  9. ACTOS [Concomitant]
     Dates: start: 20091002
  10. COLCHICINE (COLCHICINE) [Concomitant]
     Dates: start: 20091002
  11. MINOCYCLINE HCL [Concomitant]
     Dates: start: 20091002
  12. NIFEDIPINE [Concomitant]
     Dates: start: 20091002
  13. ZETIA [Concomitant]
     Dates: start: 20091002
  14. COSOPT [Concomitant]
     Dates: start: 20091002
  15. LUMIGAN [Concomitant]
     Dates: start: 20091002

REACTIONS (7)
  - ANAEMIA [None]
  - GASTROINTESTINAL HAEMORRHAGE [None]
  - HYPOVOLAEMIA [None]
  - POST PROCEDURAL HAEMATURIA [None]
  - RECTAL HAEMORRHAGE [None]
  - RENAL FAILURE ACUTE [None]
  - URINARY RETENTION [None]
